FAERS Safety Report 24576414 (Version 1)
Quarter: 2024Q4

REPORT INFORMATION
  Report Type: Spontaneous
  Country: JP (occurrence: JP)
  Receive Date: 20241104
  Receipt Date: 20241104
  Transmission Date: 20250114
  Serious: Yes (Hospitalization)
  Sender: MERCK
  Company Number: JP-MSD-2410JPN004139J

PATIENT
  Age: 48 Year
  Sex: Male
  Weight: 83.2 kg

DRUGS (8)
  1. KEYTRUDA [Suspect]
     Active Substance: PEMBROLIZUMAB
     Indication: Lung neoplasm malignant
     Dosage: 200 MILLIGRAM
     Route: 041
     Dates: start: 20240403, end: 20240403
  2. KEYTRUDA [Suspect]
     Active Substance: PEMBROLIZUMAB
     Dosage: 200 MILLIGRAM
     Route: 041
     Dates: start: 20240508
  3. PEMETREXED DISODIUM [Suspect]
     Active Substance: PEMETREXED DISODIUM
     Indication: Lung neoplasm malignant
     Dosage: UNK
     Route: 065
     Dates: start: 20240403
  4. CARBOPLATIN [Suspect]
     Active Substance: CARBOPLATIN
     Indication: Lung neoplasm malignant
     Dosage: UNK
     Route: 065
     Dates: start: 20240403
  5. FYCOMPA [Suspect]
     Active Substance: PERAMPANEL
     Indication: Metastases to central nervous system
     Dosage: 4 MILLIGRAM, QD
     Route: 048
     Dates: start: 20240219, end: 20240424
  6. CALONAL [Suspect]
     Active Substance: ACETAMINOPHEN
     Indication: Pain
     Dosage: 400 MILLIGRAM, QD
     Route: 048
     Dates: start: 20240117, end: 20240424
  7. VITAMINS [Concomitant]
     Active Substance: VITAMINS
     Dosage: UNK
     Route: 065
  8. NAPROXEN [Concomitant]
     Active Substance: NAPROXEN
     Dosage: UNK
     Route: 065

REACTIONS (1)
  - Hepatic function abnormal [Recovering/Resolving]

NARRATIVE: CASE EVENT DATE: 20240423
